FAERS Safety Report 10630218 (Version 1)
Quarter: 2014Q4

REPORT INFORMATION
  Report Type: Spontaneous
  Country: US (occurrence: US)
  Receive Date: 20141205
  Receipt Date: 20141205
  Transmission Date: 20150529
  Serious: No
  Sender: FDA-Public Use
  Company Number: US-BRISTOL-MYERS SQUIBB COMPANY-21390299

PATIENT
  Age: 63 Year
  Sex: Female

DRUGS (2)
  1. METFORMIN HCL [Concomitant]
     Active Substance: METFORMIN HYDROCHLORIDE
  2. BYDUREON [Suspect]
     Active Substance: EXENATIDE
     Dosage: INJECTION?ONGOING
     Route: 058

REACTIONS (4)
  - Weight decreased [Unknown]
  - Nausea [Recovered/Resolved]
  - Increased appetite [Unknown]
  - Vomiting [Recovered/Resolved]
